FAERS Safety Report 7862930-8 (Version None)
Quarter: 2011Q4

REPORT INFORMATION
  Report Type: 
  Country: None (occurrence: None)
  Receive Date: 20111027
  Receipt Date: 20101118
  Transmission Date: 20120403
  Serious: No
  Sender: FDA-Public Use
  Company Number: US-AMGEN-USASP2010005811

PATIENT
  Age: 51 Year
  Sex: Female

DRUGS (1)
  1. ENBREL [Suspect]
     Indication: RHEUMATOID ARTHRITIS
     Dosage: 50 MG, QWK
     Route: 058
     Dates: start: 20100512

REACTIONS (7)
  - TOOTH DISORDER [None]
  - COLONIC POLYP [None]
  - DIARRHOEA [None]
  - TOOTH INFECTION [None]
  - RECTAL HAEMORRHAGE [None]
  - TOOTHACHE [None]
  - DYSURIA [None]
